FAERS Safety Report 10698260 (Version 3)
Quarter: 2015Q1

REPORT INFORMATION
  Report Type: Report from Study
  Country: US (occurrence: US)
  Receive Date: 20150108
  Receipt Date: 20150227
  Transmission Date: 20150721
  Serious: Yes (Hospitalization, Other)
  Sender: FDA-Public Use
  Company Number: US-SA-2014SA074767

PATIENT
  Age: 63 Year
  Sex: Female
  Weight: 83.9 kg

DRUGS (21)
  1. LANTUS SOLOSTAR [Suspect]
     Active Substance: INSULIN GLARGINE
     Indication: DIABETES MELLITUS
     Dosage: DOSE:50 UNIT(S)
     Route: 058
     Dates: start: 20141113
  2. METFORMIN [Concomitant]
     Active Substance: METFORMIN HYDROCHLORIDE
     Indication: DIABETES MELLITUS
  3. MAGNESIUM OXIDE. [Concomitant]
     Active Substance: MAGNESIUM OXIDE
     Route: 048
  4. SOLOSTAR [Concomitant]
     Active Substance: DEVICE
     Indication: DIABETES MELLITUS
     Dates: start: 20141113
  5. VITAMIN D/CALCIUM [Concomitant]
     Dosage: CALCIUM 500 / VITAMIN D 500MG
     Route: 048
  6. HYDROCODONE W/ACETAMINOPHEN [Concomitant]
     Active Substance: ACETAMINOPHEN\HYDROCODONE BITARTRATE
     Indication: BACK PAIN
     Dosage: 1-2 TABLET QID AS NEEDED
     Route: 048
     Dates: start: 20141113
  7. PRAVASTATIN [Concomitant]
     Active Substance: PRAVASTATIN\PRAVASTATIN SODIUM
     Route: 048
     Dates: start: 20141006
  8. CYCLOBENZAPRINE [Concomitant]
     Active Substance: CYCLOBENZAPRINE
     Dosage: TID
     Route: 048
     Dates: start: 20140812
  9. ENALAPRIL [Concomitant]
     Active Substance: ENALAPRIL
     Dosage: STRENGTH: 20MG
     Route: 048
     Dates: start: 20141104
  10. CARAFATE [Concomitant]
     Active Substance: SUCRALFATE
     Dosage: ON EMPTY STOMACH
     Route: 048
     Dates: start: 20141023
  11. XANAX [Concomitant]
     Active Substance: ALPRAZOLAM
     Dosage: 1 DF IN MORNING AND NOON AND 2 AT BEDTIME?STRENGTH: 1MG
     Route: 048
  12. PANTOPRAZOLE [Concomitant]
     Active Substance: PANTOPRAZOLE SODIUM
     Indication: GASTRIC DISORDER
     Route: 048
  13. ASPIRIN. [Concomitant]
     Active Substance: ASPIRIN
     Route: 048
  14. COLACE [Concomitant]
     Active Substance: DOCUSATE SODIUM
     Dosage: 1 OR 2 CAPSULES
     Route: 048
     Dates: start: 20141029
  15. VITAMIN B12 [Concomitant]
     Active Substance: CYANOCOBALAMIN
     Dosage: STRENGTH: 1000MCG
     Route: 048
  16. HUMALOG [Concomitant]
     Active Substance: INSULIN LISPRO
     Indication: BLOOD GLUCOSE INCREASED
     Dosage: DOSE:9 UNIT(S)
     Dates: start: 20140820
  17. AMLODIPINE [Concomitant]
     Active Substance: AMLODIPINE BESYLATE
     Route: 048
     Dates: start: 20140731
  18. TRAZODONE [Concomitant]
     Active Substance: TRAZODONE HYDROCHLORIDE
     Indication: SLEEP DISORDER
     Dosage: STRENGTH: 100MG
     Route: 048
  19. PROZAC [Concomitant]
     Active Substance: FLUOXETINE HYDROCHLORIDE
     Indication: DEPRESSION
     Route: 048
     Dates: start: 20140731
  20. GLUCOPHAGE [Concomitant]
     Active Substance: METFORMIN HYDROCHLORIDE
     Dosage: MORNING AND EVENING MEALS FOR 3 DAYS
     Route: 048
     Dates: start: 20140829
  21. SOTALOL. [Concomitant]
     Active Substance: SOTALOL
     Dosage: 80MG STRENGTH?1 TABLET IN MORNING AND HALF IN EVENING
     Route: 048

REACTIONS (7)
  - Blood calcium decreased [Unknown]
  - Unevaluable event [Unknown]
  - Malaise [Unknown]
  - Pneumonia [Unknown]
  - Metamorphopsia [Unknown]
  - Malaise [Unknown]
  - Blood potassium decreased [Unknown]

NARRATIVE: CASE EVENT DATE: 2014
